FAERS Safety Report 5557424-9 (Version None)
Quarter: 2007Q4

REPORT INFORMATION
  Report Type: 
  Country: None (occurrence: None)
  Receive Date: 20071214
  Receipt Date: 20071206
  Transmission Date: 20080405
  Serious: Yes (Other)
  Sender: FDA-Public Use
  Company Number: JP-SANOFI-SYNTHELABO-A01200714023

PATIENT
  Age: 59 Year
  Sex: Female

DRUGS (3)
  1. FLUOROURACIL [Suspect]
     Dosage: UNKNOWN DOSAGE IN BOLUS THEN 2500MG/BODY AS CONTINUOUS INFUSION ON DAY 1-2
     Route: 042
  2. ISOVORIN [Suspect]
     Dosage: 250MG/BODY AS INFUSION ON DAY 1
     Route: 042
  3. ELPLAT [Suspect]
     Indication: COLON CANCER
     Dosage: 100MG/BODY IN INFUSION ON DAY 1
     Route: 042

REACTIONS (1)
  - BONE MARROW FAILURE [None]
